FAERS Safety Report 12329227 (Version 10)
Quarter: 2017Q1

REPORT INFORMATION
  Report Type: Report from Study
  Country: HU (occurrence: HU)
  Receive Date: 20160503
  Receipt Date: 20170203
  Transmission Date: 20170428
  Serious: Yes (Death, Life-Threatening, Hospitalization)
  Sender: FDA-Public Use
  Company Number: HU-ALEXION PHARMACEUTICALS INC.-A201602889

PATIENT
  Age: 26 Year
  Sex: Female
  Weight: 73 kg

DRUGS (23)
  1. ALGOFLEX [Concomitant]
     Indication: HEADACHE
     Dosage: 400 MG, QD
     Route: 048
     Dates: start: 20160309, end: 20160310
  2. MESTINON [Concomitant]
     Active Substance: PYRIDOSTIGMINE BROMIDE
     Indication: MYASTHENIA GRAVIS
     Dosage: 60 MG, 5 TIMES PER DAY
     Route: 048
     Dates: start: 20150502, end: 20160413
  3. AZATHIOPRIN [Concomitant]
     Active Substance: AZATHIOPRINE
     Indication: MYASTHENIA GRAVIS
     Dosage: 175 MG, QD
     Route: 048
     Dates: start: 20141008, end: 20160417
  4. ETHINYLOESTRADIOL [Concomitant]
     Indication: ORAL CONTRACEPTION
     Dosage: 1 TAB, QD
     Route: 048
     Dates: start: 20131001
  5. MEDROL [Concomitant]
     Active Substance: METHYLPREDNISOLONE
     Indication: MYASTHENIA GRAVIS
     Dosage: 16 MG, QOD
     Route: 048
     Dates: start: 20160112, end: 20160214
  6. IMURAN [Concomitant]
     Active Substance: AZATHIOPRINE
     Indication: MYASTHENIA GRAVIS
     Dosage: 175 MG, QD
     Route: 048
     Dates: start: 20141008, end: 20160417
  7. MESTINON [Concomitant]
     Active Substance: PYRIDOSTIGMINE BROMIDE
     Dosage: 60 MG, TID
     Route: 048
     Dates: start: 20160414, end: 20160424
  8. ECULIZUMAB [Suspect]
     Active Substance: ECULIZUMAB
     Dosage: 240 UNK, UNK
     Route: 042
     Dates: start: 20160222, end: 20160404
  9. NOACID                             /00069401/ [Concomitant]
     Indication: PROPHYLAXIS AGAINST GASTROINTESTINAL ULCER
     Dosage: 20 MG, BID
     Route: 048
     Dates: start: 20160417, end: 20160421
  10. NOACID                             /00069401/ [Concomitant]
     Dosage: 40 MG, QD
     Route: 048
     Dates: start: 20160422, end: 20160423
  11. CERUCAL [Concomitant]
     Active Substance: METOCLOPRAMIDE HYDROCHLORIDE
     Indication: PROPHYLAXIS
     Dosage: 10 MG, TID
     Route: 042
     Dates: start: 20160426, end: 20160428
  12. VENTER [Concomitant]
     Indication: PROPHYLAXIS
     Dosage: 1000 MG, BID
     Route: 048
     Dates: start: 20160422, end: 20160426
  13. ECULIZUMAB [Suspect]
     Active Substance: ECULIZUMAB
     Indication: MYASTHENIA GRAVIS
     Dosage: 240 ML, UNK
     Route: 042
     Dates: start: 20160125, end: 20160215
  14. MEDROL [Concomitant]
     Active Substance: METHYLPREDNISOLONE
     Dosage: 28 MG, QOD
     Route: 048
     Dates: start: 20160311, end: 20160321
  15. CONCOR [Concomitant]
     Active Substance: BISOPROLOL FUMARATE
     Indication: TACHYCARDIA
     Dosage: 5 MG, QD
     Route: 048
     Dates: start: 20160415
  16. CONCOR [Concomitant]
     Active Substance: BISOPROLOL FUMARATE
     Dosage: 5 MG, QD
     Route: 048
     Dates: start: 20160416, end: 20160423
  17. METHYLPREDISOLONE [Concomitant]
     Active Substance: METHYLPREDNISOLONE
     Dosage: 24 MG, QOD
     Route: 048
     Dates: start: 20160322, end: 20160423
  18. MEDROL [Concomitant]
     Active Substance: METHYLPREDNISOLONE
     Dosage: 24 MG, QOD
     Route: 062
     Dates: start: 20160322, end: 20160423
  19. METHYLPREDISOLONE [Concomitant]
     Active Substance: METHYLPREDNISOLONE
     Dosage: 20 MG, QOD
     Route: 048
     Dates: start: 20160215, end: 20160310
  20. METHYLPREDISOLONE [Concomitant]
     Active Substance: METHYLPREDNISOLONE
     Dosage: 28 MG, QOD
     Route: 048
     Dates: start: 20160311, end: 20160321
  21. VENTER [Concomitant]
     Dosage: 1000 MG, TID
     Route: 050
     Dates: start: 20160425, end: 20160425
  22. MEDROL [Concomitant]
     Active Substance: METHYLPREDNISOLONE
     Dosage: 20 MG, QOD
     Route: 048
     Dates: start: 20160215, end: 20160310
  23. METHYLPREDISOLONE [Concomitant]
     Active Substance: METHYLPREDNISOLONE
     Indication: MYASTHENIA GRAVIS
     Dosage: 16 MG, QOD
     Route: 048
     Dates: start: 20160112, end: 20160214

REACTIONS (6)
  - Sepsis [Not Recovered/Not Resolved]
  - Histiocytosis haematophagic [Not Recovered/Not Resolved]
  - Cytomegalovirus infection [Not Recovered/Not Resolved]
  - Hepatic failure [Fatal]
  - Pyrexia [Recovered/Resolved]
  - Disseminated intravascular coagulation [Not Recovered/Not Resolved]

NARRATIVE: CASE EVENT DATE: 201604
